FAERS Safety Report 4479071-2 (Version None)
Quarter: 2004Q4

REPORT INFORMATION
  Report Type: 
  Country: None (occurrence: None)
  Receive Date: 20040923
  Receipt Date: 20040625
  Transmission Date: 20050328
  Serious: No
  Sender: FDA-Public Use
  Company Number: 207456

PATIENT
  Age: 81 Year
  Sex: Female

DRUGS (3)
  1. AVASTIN [Suspect]
     Indication: RENAL CELL CARCINOMA STAGE UNSPECIFIED
     Dosage: QW2, INTRAVENOUS
     Route: 042
     Dates: start: 20040501
  2. INSULIN [Concomitant]
  3. NORVASC [Concomitant]

REACTIONS (1)
  - PROTEINURIA [None]
